FAERS Safety Report 19827024 (Version 2)
Quarter: 2022Q1

REPORT INFORMATION
  Report Type: Spontaneous
  Country: CA (occurrence: CA)
  Receive Date: 20210914
  Receipt Date: 20220112
  Transmission Date: 20220423
  Serious: Yes (Death, Hospitalization, Other)
  Sender: FDA-Public Use
  Company Number: CA-SA-SAC20210909000217

PATIENT
  Age: 9 Year
  Sex: Male

DRUGS (39)
  1. ALEMTUZUMAB [Suspect]
     Active Substance: ALEMTUZUMAB
     Indication: Stem cell transplant
     Dosage: 2.5 MG/KG, QD
     Route: 042
  2. ALEMTUZUMAB [Suspect]
     Active Substance: ALEMTUZUMAB
     Indication: Familial haemophagocytic lymphohistiocytosis
  3. ALEMTUZUMAB [Suspect]
     Active Substance: ALEMTUZUMAB
     Indication: Bone marrow conditioning regimen
  4. CARBOPLATIN [Suspect]
     Active Substance: CARBOPLATIN
     Indication: B-cell lymphoma
     Route: 042
  5. CISPLATIN [Suspect]
     Active Substance: CISPLATIN
     Indication: B-cell lymphoma
     Dosage: UNK
     Route: 042
  6. CYCLOPHOSPHAMIDE [Suspect]
     Active Substance: CYCLOPHOSPHAMIDE
     Indication: B-cell lymphoma
     Dosage: 2000 MG, QD
     Route: 042
  7. CYCLOPHOSPHAMIDE [Suspect]
     Active Substance: CYCLOPHOSPHAMIDE
     Indication: Stem cell transplant
     Dosage: UNK UNK, QD
     Route: 042
  8. CYCLOPHOSPHAMIDE [Suspect]
     Active Substance: CYCLOPHOSPHAMIDE
     Indication: Bone marrow conditioning regimen
     Dosage: UNK
     Route: 042
  9. CYTARABINE [Suspect]
     Active Substance: CYTARABINE
     Indication: Familial haemophagocytic lymphohistiocytosis
     Dosage: INJECTION
  10. VINCRISTINE SULFATE [Suspect]
     Active Substance: VINCRISTINE SULFATE
     Indication: B-cell lymphoma
  11. METHOTREXATE [Suspect]
     Active Substance: METHOTREXATE
     Indication: Familial haemophagocytic lymphohistiocytosis
  12. PREDNISONE [Suspect]
     Active Substance: PREDNISONE
     Indication: B-cell lymphoma
  13. DOXORUBICIN HYDROCHLORIDE [Suspect]
     Active Substance: DOXORUBICIN HYDROCHLORIDE
     Indication: B-cell lymphoma
     Dosage: UNK
     Route: 042
  14. ETOPOSIDE [Suspect]
     Active Substance: ETOPOSIDE
     Indication: B-cell lymphoma
     Dosage: 250 MG/M2, QD
  15. ETOPOSIDE [Suspect]
     Active Substance: ETOPOSIDE
     Dosage: UNK
  16. FLUDARABINE PHOSPHATE [Suspect]
     Active Substance: FLUDARABINE PHOSPHATE
     Indication: B-cell lymphoma
     Dosage: 250 MG/M2, QD
  17. FLUDARABINE PHOSPHATE [Suspect]
     Active Substance: FLUDARABINE PHOSPHATE
     Indication: Stem cell transplant
     Dosage: 250 MG/M2
  18. FLUDARABINE PHOSPHATE [Suspect]
     Active Substance: FLUDARABINE PHOSPHATE
     Indication: Bone marrow conditioning regimen
     Dosage: UNK
  19. IFOSFAMIDE [Suspect]
     Active Substance: IFOSFAMIDE
     Indication: B-cell lymphoma
     Dosage: 3 G, QD
     Route: 042
  20. IFOSFAMIDE [Suspect]
     Active Substance: IFOSFAMIDE
     Dosage: 1 G (3 G PER VIAL), QD
  21. IFOSFAMIDE [Suspect]
     Active Substance: IFOSFAMIDE
     Dosage: 3 G, QD
     Route: 042
  22. IFOSFAMIDE [Suspect]
     Active Substance: IFOSFAMIDE
     Dosage: UNK
  23. IFOSFAMIDE [Suspect]
     Active Substance: IFOSFAMIDE
     Dosage: 3 G
  24. IFOSFAMIDE [Suspect]
     Active Substance: IFOSFAMIDE
     Dosage: 1 G
  25. IFOSFAMIDE [Suspect]
     Active Substance: IFOSFAMIDE
     Dosage: 3 G, QD
     Route: 042
  26. RITUXAN [Suspect]
     Active Substance: RITUXIMAB
     Indication: B-cell lymphoma
     Route: 042
  27. BUSULFAN [Suspect]
     Active Substance: BUSULFAN
     Indication: B-cell lymphoma
     Dosage: 12 MG/KG, QD
  28. BUSULFAN [Suspect]
     Active Substance: BUSULFAN
     Indication: Bone marrow conditioning regimen
     Dosage: 12.8 MG/KG, QD
     Route: 042
  29. BUSULFAN [Suspect]
     Active Substance: BUSULFAN
     Indication: Stem cell transplant
  30. DOXORUBICIN [Suspect]
     Active Substance: DOXORUBICIN
     Indication: B-cell lymphoma
     Route: 042
  31. FILGRASTIM [Suspect]
     Active Substance: FILGRASTIM
     Indication: B-cell lymphoma
     Dosage: UNK
  32. GRANULOCYTE COLONY-STIMULATING FACTOR NOS [Suspect]
     Active Substance: GRANULOCYTE COLONY-STIMULATING FACTOR NOS
     Indication: B-cell lymphoma
  33. RITUXIMAB [Suspect]
     Active Substance: RITUXIMAB
     Indication: B-cell lymphoma
     Dosage: UNK
     Route: 042
  34. RITUXIMAB [Suspect]
     Active Substance: RITUXIMAB
     Dosage: UNK
  35. RITUXIMAB [Suspect]
     Active Substance: RITUXIMAB
     Dosage: UNK
  36. RITUXIMAB [Suspect]
     Active Substance: RITUXIMAB
     Dosage: UNK
     Route: 042
  37. ZEVALIN [Suspect]
     Active Substance: IBRITUMOMAB TIUXETAN
     Indication: B-cell lymphoma
     Dosage: 0.4MILICURIE PER KILOGRAM
  38. DEPO-MEDROL [Concomitant]
     Active Substance: METHYLPREDNISOLONE ACETATE
  39. HYDROCORTISONE [Concomitant]
     Active Substance: HYDROCORTISONE

REACTIONS (10)
  - Herpes simplex [Fatal]
  - Meningitis tuberculous [Fatal]
  - Mucosal inflammation [Fatal]
  - Progressive multifocal leukoencephalopathy [Fatal]
  - Respiratory disorder [Fatal]
  - Respiratory failure [Fatal]
  - Sepsis [Fatal]
  - Off label use [Fatal]
  - Intentional product use issue [Fatal]
  - Product use in unapproved indication [Fatal]
